FAERS Safety Report 4701424-5 (Version None)
Quarter: 2005Q2

REPORT INFORMATION
  Report Type: 
  Country: None (occurrence: None)
  Receive Date: 20050627
  Receipt Date: 20050610
  Transmission Date: 20051028
  Serious: Yes (Disabling)
  Sender: FDA-Public Use
  Company Number: 215362

PATIENT
  Age: 58 Year
  Sex: Male

DRUGS (6)
  1. BEVACIZUMAB OR PLACEBO (BEVACIZUMAB OR PLACEBO) PWDR + SOLVENT, INFUSI [Suspect]
     Indication: COLORECTAL CANCER METASTATIC
     Dosage: Q2W, INTRAVENOUS
     Route: 042
     Dates: start: 20041103
  2. FLUOROURACIL [Suspect]
     Indication: COLORECTAL CANCER METASTATIC
     Dosage: 2035 MG, INTRAVENOUS
     Route: 042
     Dates: start: 20041103
  3. LEUCOVORIN CALCIUM [Suspect]
     Indication: COLORECTAL CANCER METASTATIC
     Dosage: INTRAVENOUS
     Route: 042
     Dates: start: 20041102
  4. OXALIPLATIN(OXALIPLATIN) [Suspect]
     Indication: COLORECTAL CANCER METASTATIC
     Dosage: 170 MG, Q2W, INTRAVENOUS
     Route: 042
     Dates: start: 20041103
  5. DIOVAN [Concomitant]
  6. NORVASC [Concomitant]

REACTIONS (1)
  - SKIN ULCER [None]
